FAERS Safety Report 8346904-9 (Version None)
Quarter: 2012Q2

REPORT INFORMATION
  Report Type: 
  Country: None (occurrence: None)
  Receive Date: 20120509
  Receipt Date: 20120503
  Transmission Date: 20120825
  Serious: Yes (Other)
  Sender: FDA-Public Use
  Company Number: BR-SANOFI-AVENTIS-2012SA031624

PATIENT
  Age: 65 Year
  Sex: Male
  Weight: 82 kg

DRUGS (10)
  1. CLIKSTAR [Suspect]
     Indication: DEVICE THERAPY
  2. TEBONIN [Concomitant]
     Indication: LABYRINTHITIS
     Dosage: STRENGTH: 120 MG
     Route: 048
     Dates: start: 20080101
  3. HUMALOG [Concomitant]
     Dosage: DOSAGE : ACCORDING TO GLYCEMIA
     Route: 048
     Dates: start: 20120101
  4. SOLOSTAR [Suspect]
     Indication: DEVICE THERAPY
     Dates: end: 20120101
  5. OMEPRAZOLE [Concomitant]
     Indication: GASTRIC DISORDER
     Dosage: STRENGTH: 20 MG
     Route: 048
     Dates: start: 20100101
  6. METFORMIN HYDROCHLORIDE [Concomitant]
     Dosage: STRENGTH: 850 MG
     Route: 048
     Dates: start: 19970101
  7. LOSARTAN POTASSIUM [Concomitant]
     Indication: BLOOD PRESSURE
     Dosage: STRENGTH: 50 MG
     Route: 048
     Dates: start: 20020101
  8. LANTUS [Suspect]
     Route: 058
  9. APIDRA SOLOSTAR [Suspect]
     Route: 058
     Dates: end: 20120101
  10. ATENOLOL [Concomitant]
     Route: 048
     Dates: start: 20020101

REACTIONS (5)
  - PROSTATE CANCER [None]
  - SKELETAL INJURY [None]
  - INJECTION SITE PAIN [None]
  - HAEMATOMA [None]
  - FALL [None]
